FAERS Safety Report 25041681 (Version 2)
Quarter: 2025Q1

REPORT INFORMATION
  Report Type: Spontaneous
  Country: US (occurrence: US)
  Receive Date: 20250305
  Receipt Date: 20250305
  Transmission Date: 20250409
  Serious: Yes (Other)
  Sender: IPSEN BIOPHARMACEUTICALS, INC.
  Company Number: US-IPSEN Group, Research and Development-2025-04661

PATIENT
  Sex: Male
  Weight: 97.97 kg

DRUGS (2)
  1. SOMATULINE DEPOT [Suspect]
     Active Substance: LANREOTIDE ACETATE
     Indication: Prostate cancer
     Dosage: UNDER THE SKIN
     Route: 058
     Dates: start: 20250224
  2. SOMATULINE DEPOT [Suspect]
     Active Substance: LANREOTIDE ACETATE
     Indication: Off label use

REACTIONS (4)
  - Brachytherapy [Unknown]
  - Prostatic specific antigen increased [Unknown]
  - Urinary tract infection [Unknown]
  - Off label use [Unknown]
